FAERS Safety Report 18410132 (Version 1)
Quarter: 2020Q4

REPORT INFORMATION
  Report Type: Spontaneous
  Country: US (occurrence: US)
  Receive Date: 20201021
  Receipt Date: 20201021
  Transmission Date: 20210114
  Serious: No
  Sender: FDA-Public Use
  Company Number: None

PATIENT
  Age: 61 Year
  Sex: Male

DRUGS (1)
  1. SAMSCA [Suspect]
     Active Substance: TOLVAPTAN
     Indication: HYPONATRAEMIA
     Dosage: ?          OTHER FREQUENCY:EVERY2DAYS ;?
     Route: 048
     Dates: start: 202010

REACTIONS (2)
  - Muscular weakness [None]
  - Anxiety [None]

NARRATIVE: CASE EVENT DATE: 20201001
